FAERS Safety Report 7547207-2 (Version None)
Quarter: 2011Q2

REPORT INFORMATION
  Report Type: 
  Country: None (occurrence: None)
  Receive Date: 20110614
  Receipt Date: 20110606
  Transmission Date: 20111010
  Serious: Yes (Other)
  Sender: FDA-Public Use
  Company Number: US-UCBSA-034659

PATIENT
  Sex: Male
  Weight: 20.9 kg

DRUGS (3)
  1. KEPPRA [Suspect]
     Indication: CONVULSION
     Dosage: 312 MG IN MORNING; 375 MG AT NIGHT
     Route: 048
     Dates: start: 20100101
  2. FELBATOL [Concomitant]
     Indication: CONVULSION
     Dosage: 400 MG IN MORNING; 450 MG IN EVENING
     Route: 048
     Dates: start: 20100101
  3. KEPPRA [Suspect]
     Indication: GRAND MAL CONVULSION
     Dosage: 312 MG IN MORNING; 375 MG AT NIGHT
     Route: 048
     Dates: start: 20100101

REACTIONS (4)
  - CONVULSION [None]
  - URINARY INCONTINENCE [None]
  - DRUG INEFFECTIVE [None]
  - DYSARTHRIA [None]
